FAERS Safety Report 23085302 (Version 1)
Quarter: 2023Q4

REPORT INFORMATION
  Report Type: Spontaneous
  Country: CN (occurrence: CN)
  Receive Date: 20231019
  Receipt Date: 20231019
  Transmission Date: 20240109
  Serious: Yes (Other)
  Sender: FDA-Public Use
  Company Number: CN-002147023-NVSC2023CN221445

PATIENT
  Age: 83 Year
  Sex: Male

DRUGS (3)
  1. TRILEPTAL [Suspect]
     Active Substance: OXCARBAZEPINE
     Indication: Symptomatic treatment
     Dosage: 0.15 G, BID
     Route: 041
     Dates: start: 20230801, end: 20230918
  2. TRILEPTAL [Suspect]
     Active Substance: OXCARBAZEPINE
     Indication: Epilepsy
  3. GANCICLOVIR [Suspect]
     Active Substance: GANCICLOVIR
     Indication: Symptomatic treatment
     Dosage: 0.5 G, BID
     Route: 041
     Dates: start: 20230731, end: 20230918

REACTIONS (1)
  - White blood cell count decreased [Recovered/Resolved]

NARRATIVE: CASE EVENT DATE: 20230818
